FAERS Safety Report 24428129 (Version 1)
Quarter: 2024Q4

REPORT INFORMATION
  Report Type: Spontaneous
  Country: US (occurrence: US)
  Receive Date: 20241011
  Receipt Date: 20241011
  Transmission Date: 20250115
  Serious: Yes (Death, Life-Threatening, Hospitalization, Other)
  Sender: HIKMA
  Company Number: US-HIKMA PHARMACEUTICALS USA INC.-US-H14001-24-09431

PATIENT
  Age: 44 Year
  Sex: Male

DRUGS (5)
  1. ACETAMINOPHEN [Suspect]
     Active Substance: ACETAMINOPHEN
     Indication: Product used for unknown indication
     Dosage: UNKNOWN
     Route: 065
  2. IBUPROFEN [Suspect]
     Active Substance: IBUPROFEN
     Indication: Product used for unknown indication
     Dosage: UNK
     Route: 065
  3. CEFTRIAXONE [Concomitant]
     Active Substance: CEFTRIAXONE
     Indication: Antibiotic therapy
     Dosage: UNK
     Route: 065
  4. DOXYCYCLINE [Concomitant]
     Active Substance: DOXYCYCLINE
     Indication: Antibiotic therapy
     Dosage: UNK
     Route: 065
  5. IVERMECTIN [Concomitant]
     Active Substance: IVERMECTIN
     Indication: Product used for unknown indication
     Dosage: UNK
     Route: 065

REACTIONS (2)
  - Drug reaction with eosinophilia and systemic symptoms [Fatal]
  - Haemophagocytic lymphohistiocytosis [Fatal]
